FAERS Safety Report 9808987 (Version 1)
Quarter: 2014Q1

REPORT INFORMATION
  Report Type: Spontaneous
  Country: FR (occurrence: FR)
  Receive Date: 20140110
  Receipt Date: 20140110
  Transmission Date: 20141002
  Serious: Yes (Hospitalization)
  Sender: FDA-Public Use
  Company Number: PHHY2014FR002470

PATIENT
  Age: 66 Year
  Sex: Male

DRUGS (9)
  1. LEPONEX [Suspect]
     Indication: ABNORMAL BEHAVIOUR
     Dosage: 50 MG, QD (PROGRESSIVE DOSE INCREASE STARTING WITH OF 50 MG ONCE A DAY )
     Route: 048
     Dates: start: 20130123
  2. LEPONEX [Suspect]
     Dosage: REDUCED DOSE
     Route: 048
  3. LEPONEX [Suspect]
     Dosage: UNK
     Route: 048
     Dates: end: 201302
  4. KARDEGIC [Concomitant]
     Dosage: 75 MG, UNK
     Route: 048
  5. CARDENSIEL [Concomitant]
     Dosage: 1.25 MG, UNK
     Route: 048
  6. TRIATEC [Concomitant]
     Dosage: 2.5 MG, UNK
     Route: 048
  7. INIPOMP [Concomitant]
     Dosage: 20 MG, UNK
     Route: 048
  8. CRESTOR [Concomitant]
     Dosage: 20 MG, UNK
     Route: 048
  9. ZOPICLONE [Concomitant]

REACTIONS (2)
  - Extrapyramidal disorder [Recovered/Resolved]
  - Agitation [Recovered/Resolved]
